FAERS Safety Report 19476534 (Version 1)
Quarter: 2021Q2

REPORT INFORMATION
  Report Type: Spontaneous
  Country: US (occurrence: US)
  Receive Date: 20210630
  Receipt Date: 20210630
  Transmission Date: 20210717
  Serious: No
  Sender: FDA-Public Use
  Company Number: US-BAYER-2021-166981

PATIENT

DRUGS (1)
  1. CLARITIN [Suspect]
     Active Substance: LORATADINE
     Dosage: UNK
     Route: 048
     Dates: start: 20210627

REACTIONS (3)
  - Malaise [Unknown]
  - Therapeutic product effect delayed [Unknown]
  - Inappropriate schedule of product administration [None]

NARRATIVE: CASE EVENT DATE: 202106
